FAERS Safety Report 5821679-3 (Version None)
Quarter: 2008Q3

REPORT INFORMATION
  Report Type: 
  Country: None (occurrence: None)
  Receive Date: 20080724
  Receipt Date: 20080717
  Transmission Date: 20090109
  Serious: Yes (Disabling)
  Sender: FDA-Public Use
  Company Number: DK-AVENTIS-200816827GDDC

PATIENT
  Age: 17 Year
  Sex: Female

DRUGS (3)
  1. DDAVP [Suspect]
     Indication: DIABETES INSIPIDUS
     Route: 048
     Dates: start: 19980101
  2. LEVOTHYROXINE SODIUM [Concomitant]
     Dates: start: 19980101
  3. HYDROCORTISONE [Concomitant]
     Route: 048
     Dates: start: 19980101

REACTIONS (3)
  - DEPRESSION [None]
  - INTENTIONAL SELF-INJURY [None]
  - RESTLESSNESS [None]
